FAERS Safety Report 14473787 (Version 2)
Quarter: 2018Q1

REPORT INFORMATION
  Report Type: Spontaneous
  Country: US (occurrence: US)
  Receive Date: 20180201
  Receipt Date: 20180206
  Transmission Date: 20180509
  Serious: No
  Sender: FDA-Public Use
  Company Number: US-PFIZER INC-2018042921

PATIENT
  Sex: Female

DRUGS (1)
  1. EUCRISA [Suspect]
     Active Substance: CRISABOROLE
     Indication: EYE SWELLING
     Dosage: UNK, ON FACE
     Route: 061
     Dates: start: 201801

REACTIONS (2)
  - Product use in unapproved indication [Unknown]
  - Application site pain [Unknown]

NARRATIVE: CASE EVENT DATE: 201801
